FAERS Safety Report 22212952 (Version 2)
Quarter: 2023Q2

REPORT INFORMATION
  Report Type: Spontaneous
  Country: IT (occurrence: IT)
  Receive Date: 20230414
  Receipt Date: 20230419
  Transmission Date: 20230721
  Serious: Yes (Disabling, Other)
  Sender: FDA-Public Use
  Company Number: None

PATIENT
  Age: 45 Year
  Sex: Male
  Weight: 115 kg

DRUGS (8)
  1. ABILIFY MAINTENA [Suspect]
     Active Substance: ARIPIPRAZOLE
     Indication: Psychotic disorder
     Dosage: 400 MG, EVERY 30 DAYS
     Route: 030
     Dates: end: 20210915
  2. RISPERDAL [Suspect]
     Active Substance: RISPERIDONE
     Indication: Product used for unknown indication
     Dosage: 50 MG (50 DEPOT EVERY 1 DAYS)
     Route: 030
     Dates: start: 20230120
  3. HALOPERIDOL DECANOATE [Suspect]
     Active Substance: HALOPERIDOL DECANOATE
     Indication: Paranoia
     Dosage: 50 MG EVERY 14 DAYS (DROPS 33-33-33)
     Route: 030
     Dates: start: 20121030, end: 20151030
  4. ARIPIPRAZOLE [Concomitant]
     Active Substance: ARIPIPRAZOLE
     Indication: Product used for unknown indication
     Dosage: 15 MG, EVERY 12 HOURS
     Route: 065
     Dates: start: 20151001, end: 20210915
  5. ALPRAZOLAM [Concomitant]
     Active Substance: ALPRAZOLAM
     Indication: Product used for unknown indication
     Dosage: 1 MG, QD
     Route: 065
     Dates: start: 20121030, end: 20151030
  6. OLANZAPINE [Concomitant]
     Active Substance: OLANZAPINE
     Indication: Product used for unknown indication
     Dosage: 10 MG, QD
     Route: 065
     Dates: start: 20121030, end: 20151030
  7. CLONAZEPAM [Concomitant]
     Active Substance: CLONAZEPAM
     Indication: Product used for unknown indication
     Dosage: 20 GTT (1/12 MILLILITRE) AS NEEDED
     Route: 065
     Dates: start: 20151001, end: 20210915
  8. TALOFEN [Concomitant]
     Active Substance: PROMAZINE HYDROCHLORIDE
     Indication: Product used for unknown indication
     Dosage: 70 GTT, QD (1/12 MILLILITRE)
     Route: 065
     Dates: start: 20221010, end: 20230120

REACTIONS (18)
  - Hallucinations, mixed [Recovering/Resolving]
  - Hallucinations, mixed [Recovered/Resolved]
  - Erectile dysfunction [Unknown]
  - Sleep apnoea syndrome [Unknown]
  - Hot flush [Unknown]
  - Emotional poverty [Unknown]
  - Peripheral swelling [Unknown]
  - Nightmare [Unknown]
  - Hypoaesthesia [Unknown]
  - Libido decreased [Unknown]
  - Eczema [Unknown]
  - Lethargy [Unknown]
  - Somnolence [Unknown]
  - Headache [Unknown]
  - Weight increased [Unknown]
  - Dizziness [Unknown]
  - Fatigue [Unknown]
  - Product use in unapproved indication [Unknown]

NARRATIVE: CASE EVENT DATE: 20150609
